FAERS Safety Report 8801735 (Version 1)
Quarter: 2012Q4

REPORT INFORMATION
  Report Type: 
  Country: CH (occurrence: CH)
  Receive Date: 20120921
  Receipt Date: 20120921
  Transmission Date: 20130627
  Serious: Yes (Hospitalization, Other)
  Sender: FDA-Public Use
  Company Number: CH-ELI_LILLY_AND_COMPANY-CH201209003002

PATIENT
  Age: 42 Year
  Sex: Female
  Weight: 84.2 kg

DRUGS (9)
  1. FLUOXETINE [Suspect]
     Indication: PERSONALITY DISORDER
     Dosage: UNK
     Route: 048
     Dates: start: 201206, end: 20120731
  2. METHADON [Concomitant]
     Indication: PERSONALITY DISORDER
     Dosage: 130 mg, qd
     Route: 048
     Dates: start: 2008
  3. METHADON [Concomitant]
     Dosage: 180 mg, qd
     Route: 048
  4. METHADON [Concomitant]
     Dosage: 250 mg, qd
     Route: 048
     Dates: end: 20120731
  5. TRITTICO [Concomitant]
     Indication: PERSONALITY DISORDER
     Dosage: UNK
     Route: 048
     Dates: end: 20120731
  6. MARCOUMAR [Concomitant]
     Dosage: 3 mg, qd
     Route: 048
  7. ESOMEP                             /00661201/ [Concomitant]
     Dosage: 40 mg, qd
     Route: 048
  8. SERESTA [Concomitant]
     Dosage: 7.5 mg, qd
     Route: 048
     Dates: end: 201207
  9. TORASEMID [Concomitant]
     Dosage: 10 mg, qd
     Route: 048
     Dates: end: 20120731

REACTIONS (2)
  - Torsade de pointes [Recovered/Resolved]
  - Hypokalaemia [Unknown]
